FAERS Safety Report 6828835-6 (Version None)
Quarter: 2010Q3

REPORT INFORMATION
  Report Type: 
  Country: None (occurrence: None)
  Receive Date: 20100709
  Receipt Date: 20070221
  Transmission Date: 20110219
  Serious: No
  Sender: FDA-Public Use
  Company Number: US-PFIZER INC-2007014486

PATIENT
  Age: 38 Year
  Sex: Female

DRUGS (3)
  1. CHANTIX [Suspect]
     Indication: SMOKING CESSATION THERAPY
     Dates: start: 20070212
  2. VYTORIN [Concomitant]
     Indication: BLOOD CHOLESTEROL INCREASED
  3. DYAZIDE [Concomitant]
     Indication: HYPERTENSION

REACTIONS (5)
  - DECREASED APPETITE [None]
  - HEADACHE [None]
  - INITIAL INSOMNIA [None]
  - INSOMNIA [None]
  - RESTLESSNESS [None]
